FAERS Safety Report 9942363 (Version 2)
Quarter: 2014Q2

REPORT INFORMATION
  Report Type: Spontaneous
  Country: US (occurrence: US)
  Receive Date: 20140303
  Receipt Date: 20140418
  Transmission Date: 20141212
  Serious: No
  Sender: FDA-Public Use
  Company Number: US-PFIZER INC-2014060221

PATIENT
  Age: 48 Year
  Sex: Female
  Weight: 58.96 kg

DRUGS (4)
  1. RELPAX [Suspect]
     Indication: MIGRAINE
     Dosage: 80 MG, DAILY
     Dates: start: 2009
  2. LYRICA [Concomitant]
     Indication: FIBROMYALGIA
     Dosage: UNK
  3. LYRICA [Concomitant]
     Indication: EPILEPSY
  4. TEGRETOL [Concomitant]
     Indication: EPILEPSY
     Dosage: UNK

REACTIONS (1)
  - Drug ineffective [Unknown]
